FAERS Safety Report 15957269 (Version 4)
Quarter: 2020Q4

REPORT INFORMATION
  Report Type: Report from Study
  Country: TW (occurrence: TW)
  Receive Date: 20190213
  Receipt Date: 20201123
  Transmission Date: 20210113
  Serious: Yes (Death, Hospitalization, Other)
  Sender: FDA-Public Use
  Company Number: TW-INCYTE CORPORATION-2018IN006876

PATIENT

DRUGS (20)
  1. APROVEL [Concomitant]
     Active Substance: IRBESARTAN
     Indication: HYPERTENSION
     Dosage: 75 MG, UNK
     Route: 048
     Dates: start: 20170511, end: 20170727
  2. DIPHENHYDRAMINE HCL [Concomitant]
     Active Substance: DIPHENHYDRAMINE HYDROCHLORIDE
     Dosage: 30 MG
     Route: 042
     Dates: start: 20180111, end: 20180111
  3. FUSIDIC ACID [Concomitant]
     Active Substance: FUSIDIC ACID
     Indication: HERPES ZOSTER
     Dosage: 1 APPLY
     Route: 061
     Dates: start: 20180621
  4. XYZAL [Concomitant]
     Active Substance: LEVOCETIRIZINE DIHYDROCHLORIDE
     Indication: MYELOFIBROSIS
     Dosage: 2.5 MG
     Route: 048
     Dates: start: 20170511, end: 20180809
  5. ACYCLOVIR [ACICLOVIR] [Concomitant]
     Active Substance: ACYCLOVIR
     Indication: HERPES ZOSTER
     Dosage: 1 APPLY
     Route: 061
     Dates: start: 20180621, end: 20180808
  6. ALPRALINE [Concomitant]
     Active Substance: ALPRAZOLAM
     Indication: INSOMNIA
     Dosage: 0.25 MG
     Route: 048
     Dates: start: 20180302, end: 20180808
  7. DIPHENHYDRAMINE HCL [Concomitant]
     Active Substance: DIPHENHYDRAMINE HYDROCHLORIDE
     Indication: PROPHYLAXIS
     Dosage: 30 MG
     Route: 042
     Dates: start: 20170425, end: 20170425
  8. CEFTIBUTEN. [Concomitant]
     Active Substance: CEFTIBUTEN
     Indication: PROPHYLAXIS
     Dosage: 200 MG, UNK
     Route: 048
     Dates: start: 20180407, end: 20180410
  9. BUSCOPAN [Concomitant]
     Active Substance: BUTYLSCOPOLAMINE BROMIDE
     Indication: PANENDOSCOPY
     Dosage: 20 MG
     Route: 030
     Dates: start: 20180412, end: 20180412
  10. JAKAVI [Suspect]
     Active Substance: RUXOLITINIB
     Indication: MYELOFIBROSIS
     Dosage: 10 MG, BID
     Route: 048
     Dates: start: 20170511, end: 20170525
  11. MAGNESIUM OXIDE. [Concomitant]
     Active Substance: MAGNESIUM OXIDE
     Indication: CONSTIPATION PROPHYLAXIS
     Dosage: 250 MG
     Route: 048
     Dates: start: 20180409
  12. JAKAVI [Suspect]
     Active Substance: RUXOLITINIB
     Dosage: 30 MG, UNK
     Route: 048
     Dates: start: 20180112
  13. JAKAVI [Suspect]
     Active Substance: RUXOLITINIB
     Dosage: 20 MG, QD
     Route: 048
     Dates: start: 20180813
  14. BETAMETHASONE VALERATE. [Concomitant]
     Active Substance: BETAMETHASONE VALERATE
     Indication: PRURITUS
     Dosage: 1 OT, UNK
     Route: 061
     Dates: start: 20180405, end: 20180406
  15. DIPHENHYDRAMINE HCL [Concomitant]
     Active Substance: DIPHENHYDRAMINE HYDROCHLORIDE
     Dosage: 30 MG
     Route: 042
     Dates: start: 20180404, end: 20180406
  16. HYDREA [Concomitant]
     Active Substance: HYDROXYUREA
     Indication: MYELOFIBROSIS
     Dosage: 500 MG
     Route: 048
     Dates: start: 20170629, end: 20180810
  17. JAKAVI [Suspect]
     Active Substance: RUXOLITINIB
     Dosage: 20 MG, UNK
     Route: 048
     Dates: start: 20170526, end: 20180111
  18. ALPRAZOLAM. [Concomitant]
     Active Substance: ALPRAZOLAM
     Indication: INSOMNIA
     Dosage: 0.5 MG, UNK
     Route: 048
     Dates: start: 20170511, end: 20171115
  19. NORVASC [Concomitant]
     Active Substance: AMLODIPINE BESYLATE
     Indication: HYPERTENSION
     Dosage: 5 MG
     Route: 048
     Dates: start: 20170728, end: 20180815
  20. FEBURIC [Concomitant]
     Active Substance: FEBUXOSTAT
     Indication: PRODUCT USED FOR UNKNOWN INDICATION
     Dosage: 40 MG
     Route: 065
     Dates: start: 20180621, end: 20180815

REACTIONS (16)
  - Inappropriate schedule of product administration [Unknown]
  - Mouth ulceration [Unknown]
  - Cellulitis [Unknown]
  - Upper respiratory tract infection [Recovered/Resolved]
  - Chills [Unknown]
  - Cough [Unknown]
  - Multiple organ dysfunction syndrome [Fatal]
  - Face oedema [Unknown]
  - Loss of consciousness [Unknown]
  - Pyrexia [Unknown]
  - Erythema [Unknown]
  - Lung infiltration [Unknown]
  - Pneumonia [Unknown]
  - Rhinorrhoea [Unknown]
  - Septic shock [Unknown]
  - Upper respiratory tract infection [Recovered/Resolved]

NARRATIVE: CASE EVENT DATE: 20170817
